FAERS Safety Report 8205949-X (Version None)
Quarter: 2012Q1

REPORT INFORMATION
  Report Type: 
  Country: None (occurrence: None)
  Receive Date: 20120313
  Receipt Date: 20120307
  Transmission Date: 20120608
  Serious: Yes (Disabling)
  Sender: FDA-Public Use
  Company Number: US-PURDUE-USA-2012-0082917

PATIENT
  Sex: Female

DRUGS (1)
  1. BUTRANS [Suspect]
     Indication: BACK PAIN
     Dosage: 10 MCG, Q1H
     Route: 062
     Dates: start: 20120211, end: 20120214

REACTIONS (3)
  - BLINDNESS TRANSIENT [None]
  - DIPLOPIA [None]
  - IMPAIRED DRIVING ABILITY [None]
